APPROVED DRUG PRODUCT: TROSPIUM CHLORIDE
Active Ingredient: TROSPIUM CHLORIDE
Strength: 20MG
Dosage Form/Route: TABLET;ORAL
Application: A091688 | Product #001 | TE Code: AB
Applicant: INVAGEN PHARMACEUTICALS INC
Approved: Aug 23, 2016 | RLD: No | RS: No | Type: RX